FAERS Safety Report 20778737 (Version 1)
Quarter: 2022Q2

REPORT INFORMATION
  Report Type: Spontaneous
  Country: US (occurrence: None)
  Receive Date: 20220503
  Receipt Date: 20220503
  Transmission Date: 20220721
  Serious: Yes (Other)
  Sender: FDA-Public Use
  Company Number: US-Fresenius Kabi-FK202205034

PATIENT
  Age: 6 Week
  Sex: Male

DRUGS (5)
  1. ETOPOSIDE [Suspect]
     Active Substance: ETOPOSIDE
     Indication: Retinoblastoma
     Dosage: ON DAYS 1 AND 2 FOR 4 CYCLES
     Route: 042
  2. CISPLATIN [Suspect]
     Active Substance: CISPLATIN
     Indication: Retinoblastoma
     Dosage: OVER 6 HOURS ON DAY 0
     Route: 042
  3. MESNA [Suspect]
     Active Substance: MESNA
     Indication: Retinoblastoma
     Dosage: DAY 2
  4. CYCLOPHOSPHAMIDE [Suspect]
     Active Substance: CYCLOPHOSPHAMIDE
     Indication: Retinoblastoma
     Dosage: OVER 1 HOURS ON DAYS 1
     Route: 042
  5. VINCRISTINE [Suspect]
     Active Substance: VINCRISTINE
     Indication: Retinoblastoma
     Dosage: MAXIMUM DOSE OF 2 MG/M2 ON DAY 0

REACTIONS (4)
  - Neutropenia [Recovered/Resolved]
  - Deafness neurosensory [Unknown]
  - Nausea [Unknown]
  - Vomiting [Unknown]
